FAERS Safety Report 10215634 (Version 1)
Quarter: 2014Q2

REPORT INFORMATION
  Report Type: Spontaneous
  Country: US (occurrence: None)
  Receive Date: 20140603
  Receipt Date: 20140603
  Transmission Date: 20141212
  Serious: Yes (Other)
  Sender: FDA-Public Use
  Company Number: None

PATIENT
  Age: 88 Year
  Sex: Female

DRUGS (1)
  1. ALENDRONATE SODIUM 70 MG AUSTAR/VIRTUS PHARMACEUTICALS [Suspect]
     Indication: OSTEOPOROSIS POSTMENOPAUSAL
     Route: 048

REACTIONS (1)
  - Hallucination [None]
